FAERS Safety Report 4990437-4 (Version None)
Quarter: 2006Q2

REPORT INFORMATION
  Report Type: 
  Country: None (occurrence: None)
  Receive Date: 20060501
  Receipt Date: 20060501
  Transmission Date: 20061013
  Serious: Yes (Other)
  Sender: FDA-Public Use
  Company Number: None

PATIENT
  Age: 25 Year
  Sex: Female
  Weight: 49.8957 kg

DRUGS (1)
  1. PILOCARPINE [Suspect]
     Dosage: 1 DROP  QD  OU
     Route: 061
     Dates: start: 20060425

REACTIONS (1)
  - BLINDNESS TRANSIENT [None]
